FAERS Safety Report 7360590-6 (Version None)
Quarter: 2011Q1

REPORT INFORMATION
  Report Type: 
  Country: None (occurrence: None)
  Receive Date: 20110315
  Receipt Date: 20110315
  Transmission Date: 20110831
  Serious: No
  Sender: FDA-Public Use
  Company Number: None

PATIENT
  Age: 51 Year
  Sex: Male
  Weight: 106.5953 kg

DRUGS (2)
  1. LEVAQUIN [Suspect]
     Indication: OROPHARYNGEAL PAIN
     Dosage: 500MG ONE TABLET A DAY PO
     Route: 048
     Dates: start: 20101020, end: 20101025
  2. LEVAQUIN [Suspect]
     Indication: HYPERSENSITIVITY
     Dosage: 500MG ONE TABLET A DAY PO
     Route: 048
     Dates: start: 20101020, end: 20101025

REACTIONS (8)
  - IMPAIRED WORK ABILITY [None]
  - DYSSTASIA [None]
  - GAIT DISTURBANCE [None]
  - PAIN IN EXTREMITY [None]
  - BONE PAIN [None]
  - WEIGHT BEARING DIFFICULTY [None]
  - BACK PAIN [None]
  - PARAESTHESIA [None]
